FAERS Safety Report 4607892-1 (Version None)
Quarter: 2005Q1

REPORT INFORMATION
  Report Type: 
  Country: None (occurrence: None)
  Receive Date: 20050310
  Receipt Date: 20050301
  Transmission Date: 20050727
  Serious: Yes (Hospitalization)
  Sender: FDA-Public Use
  Company Number: 2005AP00617

PATIENT
  Age: 75 Year
  Sex: Male
  Weight: 53 kg

DRUGS (12)
  1. DIPRIVAN [Suspect]
     Indication: SEDATION
     Dosage: 10 MG / HR IV
     Route: 042
     Dates: start: 20050105, end: 20050107
  2. DIPRIVAN [Suspect]
     Indication: SEDATION
     Dosage: 50 MG/ HR IV
     Route: 042
     Dates: start: 20050107, end: 20050125
  3. SOLU-MEDROL [Concomitant]
  4. NEOPHYLLIN [Concomitant]
  5. FULCALIQ [Concomitant]
  6. ELEMEMIC [Concomitant]
  7. GASTER [Concomitant]
  8. PANSPORIN [Concomitant]
  9. ALLOID [Concomitant]
  10. PREDONINE [Concomitant]
  11. HOKUNALIN [Concomitant]
  12. OMEPRAL [Concomitant]

REACTIONS (5)
  - DELAYED RECOVERY FROM ANAESTHESIA [None]
  - DISORIENTATION [None]
  - PSYCHIATRIC SYMPTOM [None]
  - RESPIRATORY FAILURE [None]
  - SEDATION [None]
